FAERS Safety Report 14657473 (Version 5)
Quarter: 2019Q4

REPORT INFORMATION
  Report Type: Report from Study
  Country: US (occurrence: US)
  Receive Date: 20180320
  Receipt Date: 20191022
  Transmission Date: 20200122
  Serious: Yes (Other)
  Sender: FDA-Public Use
  Company Number: US-UCBSA-2018006966

PATIENT
  Age: 68 Year
  Sex: Female
  Weight: 105 kg

DRUGS (2)
  1. CERTOLIZUMAB PEGOL [Suspect]
     Active Substance: CERTOLIZUMAB PEGOL
     Indication: CROHN^S DISEASE
     Dosage: 400 MG, EV 2 WEEKS(QOW) (NDC#: 50474071079)
     Route: 058
     Dates: start: 201712, end: 2018
  2. CERTOLIZUMAB PEGOL [Suspect]
     Active Substance: CERTOLIZUMAB PEGOL
     Indication: RHEUMATOID ARTHRITIS
     Dosage: 400 MG, EV 4 WEEKS
     Route: 058
     Dates: start: 2018

REACTIONS (13)
  - Neoplasm malignant [Not Recovered/Not Resolved]
  - Oral herpes [Recovered/Resolved]
  - Visual impairment [Unknown]
  - Cough [Unknown]
  - Pain [Recovering/Resolving]
  - Skin discolouration [Not Recovered/Not Resolved]
  - Headache [Unknown]
  - Fatigue [Unknown]
  - Dry mouth [Unknown]
  - Therapeutic product effect decreased [Unknown]
  - Abdominal pain lower [Not Recovered/Not Resolved]
  - Nasopharyngitis [Unknown]
  - Pain in extremity [Recovering/Resolving]

NARRATIVE: CASE EVENT DATE: 2018
